FAERS Safety Report 10331893 (Version 3)
Quarter: 2014Q4

REPORT INFORMATION
  Report Type: Report from Study
  Country: US (occurrence: US)
  Receive Date: 20140722
  Receipt Date: 20141103
  Transmission Date: 20150528
  Serious: Yes (Disabling, Other)
  Sender: FDA-Public Use
  Company Number: US-SA-2014SA011997

PATIENT
  Age: 48 Year
  Sex: Male

DRUGS (7)
  1. CRESTOR [Concomitant]
     Active Substance: ROSUVASTATIN CALCIUM
  2. ADALAT [Concomitant]
     Active Substance: NIFEDIPINE
  3. VALIUM [Concomitant]
     Active Substance: DIAZEPAM
  4. VITAMIN B12 [Concomitant]
     Active Substance: CYANOCOBALAMIN
  5. LYRICA [Concomitant]
     Active Substance: PREGABALIN
  6. COPAXONE [Concomitant]
     Active Substance: GLATIRAMER ACETATE
     Dates: start: 20140916
  7. AUBAGIO [Suspect]
     Active Substance: TERIFLUNOMIDE
     Indication: MULTIPLE SCLEROSIS
     Route: 048
     Dates: start: 20140124, end: 20140915

REACTIONS (9)
  - Nuclear magnetic resonance imaging abnormal [Unknown]
  - Headache [Recovered/Resolved]
  - Dysstasia [Unknown]
  - Blood pressure increased [Not Recovered/Not Resolved]
  - Burning sensation [Unknown]
  - Nausea [Recovered/Resolved]
  - Musculoskeletal stiffness [Unknown]
  - Muscle spasticity [Unknown]
  - Abdominal discomfort [Recovered/Resolved]

NARRATIVE: CASE EVENT DATE: 201401
